FAERS Safety Report 7237812-5 (Version None)
Quarter: 2011Q1

REPORT INFORMATION
  Report Type: 
  Country: None (occurrence: None)
  Receive Date: 20110119
  Receipt Date: 20110119
  Transmission Date: 20110831
  Serious: Yes (Disabling)
  Sender: FDA-Public Use
  Company Number: None

PATIENT
  Age: 77 Year
  Sex: Male
  Weight: 81.6475 kg

DRUGS (5)
  1. SULFASALAZINE [Concomitant]
  2. LUMIN EYE DROPS [Concomitant]
  3. LEVOTHYROXINE SODIUM [Suspect]
     Indication: HYPOTHYROIDISM
     Dosage: 25 TO 75 MCG DAILY - AM ORALLY SPRING 2010 - FALL 2010
     Route: 048
     Dates: start: 20100101, end: 20100101
  4. LEVOTHYROXINE SODIUM [Suspect]
     Indication: CONSTIPATION
     Dosage: 25 TO 75 MCG DAILY - AM ORALLY SPRING 2010 - FALL 2010
     Route: 048
     Dates: start: 20100101, end: 20100101
  5. COSOPT [Concomitant]

REACTIONS (2)
  - FEELING ABNORMAL [None]
  - ARTHRALGIA [None]
